FAERS Safety Report 21905954 (Version 3)
Quarter: 2023Q1

REPORT INFORMATION
  Report Type: Spontaneous
  Country: AT (occurrence: AT)
  Receive Date: 20230124
  Receipt Date: 20230213
  Transmission Date: 20230418
  Serious: Yes (Other)
  Sender: FDA-Public Use
  Company Number: AT-CELLTRION INC.-2023AT001098

PATIENT

DRUGS (8)
  1. RITUXIMAB [Suspect]
     Active Substance: RITUXIMAB
     Indication: Immunosuppressant drug therapy
     Dosage: 2 X 1 G ( INTERVALS OF 2 WEEKS AND TWO FURTHER APPLICATIONS AT INTERVALS OF 6 MONTHS)
  2. RITUXIMAB [Suspect]
     Active Substance: RITUXIMAB
     Indication: Neuromyelitis optica spectrum disorder
     Dosage: 2 G, Q2W (TWO FURTHER APPLICATIONS AT INTERVALS OF 6 MONTHS EACH)
  3. RITUXIMAB [Suspect]
     Active Substance: RITUXIMAB
     Dosage: 2 G (TWO FURTHER APPLICATIONS AT INTERVALS OF 6 MONTHS EACH)
  4. RITUXIMAB [Suspect]
     Active Substance: RITUXIMAB
     Dosage: TWO FURTHER DOSES ADMINISTRATIONS AT INTERVALS OF 6 MONTHS
  5. PREDNISOLONE [Concomitant]
     Active Substance: PREDNISOLONE
     Indication: Antifungal prophylaxis
     Dosage: P.O. IN SLOWLY DECREASING DOSES
     Route: 048
  6. PREDNISOLONE [Concomitant]
     Active Substance: PREDNISOLONE
     Indication: Neuromyelitis optica spectrum disorder
     Dosage: UNK, (SLOWLY DECREASING DOSES)
     Route: 048
  7. METHYLPREDNISOLONE [Concomitant]
     Active Substance: METHYLPREDNISOLONE
  8. SATRALIZUMAB [Concomitant]
     Active Substance: SATRALIZUMAB
     Indication: Prophylaxis

REACTIONS (3)
  - Agranulocytosis [Recovered/Resolved]
  - Neutropenia [Unknown]
  - Drug ineffective for unapproved indication [Unknown]
